FAERS Safety Report 9105180 (Version 3)
Quarter: 2013Q2

REPORT INFORMATION
  Report Type: Report from Study
  Country: US (occurrence: US)
  Receive Date: 20130219
  Receipt Date: 20130405
  Transmission Date: 20140414
  Serious: Yes (Other)
  Sender: FDA-Public Use
  Company Number: US-BAYER-2013-005172

PATIENT
  Age: 61 Year
  Sex: Male

DRUGS (1)
  1. NEXAVAR [Suspect]
     Indication: THYROID CANCER
     Dosage: 400 MG, BID
     Route: 048
     Dates: start: 20130113

REACTIONS (13)
  - Epistaxis [None]
  - Oropharyngeal blistering [None]
  - Tumour haemorrhage [Not Recovered/Not Resolved]
  - Haemoptysis [None]
  - Back pain [Not Recovered/Not Resolved]
  - Chest discomfort [None]
  - Respiration abnormal [None]
  - Sleep disorder [None]
  - Weight decreased [Not Recovered/Not Resolved]
  - Rash [Not Recovered/Not Resolved]
  - Off label use [None]
  - Cough [Not Recovered/Not Resolved]
  - Respiratory tract congestion [Not Recovered/Not Resolved]
